FAERS Safety Report 7347019-9 (Version None)
Quarter: 2011Q1

REPORT INFORMATION
  Report Type: 
  Country: None (occurrence: None)
  Receive Date: 20110311
  Receipt Date: 20110303
  Transmission Date: 20110831
  Serious: Yes (Other)
  Sender: FDA-Public Use
  Company Number: PHHY2011MT17908

PATIENT
  Sex: Female

DRUGS (1)
  1. LESCOL [Suspect]
     Indication: HYPERCHOLESTEROLAEMIA
     Dosage: UNK
     Route: 048
     Dates: start: 20080101, end: 20080101

REACTIONS (2)
  - MUSCLE ATROPHY [None]
  - WEIGHT DECREASED [None]
